FAERS Safety Report 17895683 (Version 1)
Quarter: 2020Q2

REPORT INFORMATION
  Report Type: Report from Study
  Country: US (occurrence: US)
  Receive Date: 20200615
  Receipt Date: 20200615
  Transmission Date: 20200714
  Serious: Yes (Hospitalization)
  Sender: FDA-Public Use
  Company Number: US-JNJFOC-20200408555

PATIENT
  Sex: Female

DRUGS (1)
  1. STELARA [Suspect]
     Active Substance: USTEKINUMAB
     Indication: CROHN^S DISEASE
     Dosage: NEXT DOSE 90MG SUBCUTANEOUSLY EVERY 8 WEEKS
     Route: 042
     Dates: start: 20200401

REACTIONS (1)
  - Gastrointestinal carcinoma [Unknown]
